FAERS Safety Report 19790271 (Version 1)
Quarter: 2021Q3

REPORT INFORMATION
  Report Type: Report from Study
  Country: US (occurrence: US)
  Receive Date: 20210906
  Receipt Date: 20210906
  Transmission Date: 20211014
  Serious: No
  Sender: FDA-Public Use
  Company Number: US-ACADIA PHARMACEUTICALS INC.-ACA-2021-PIM-002966

PATIENT
  Sex: Male

DRUGS (2)
  1. NUPLAZID [Suspect]
     Active Substance: PIMAVANSERIN TARTRATE
     Dosage: TAPERING OFF OF NUPLAZID BY GIVING HIM A PILL EVERY OTHER DAY, EVERY 2 DAYS AND SO ON
     Route: 048
     Dates: start: 2021, end: 2021
  2. NUPLAZID [Suspect]
     Active Substance: PIMAVANSERIN TARTRATE
     Indication: PARKINSON^S DISEASE PSYCHOSIS
     Dosage: 34 MILLIGRAM, QD
     Route: 048
     Dates: start: 2021, end: 2021

REACTIONS (5)
  - Hallucination [Recovered/Resolved]
  - Nightmare [Recovered/Resolved]
  - Inappropriate schedule of product administration [Recovered/Resolved]
  - Depression [Recovered/Resolved]
  - Underdose [Recovered/Resolved]

NARRATIVE: CASE EVENT DATE: 2021
